FAERS Safety Report 6294927-6 (Version None)
Quarter: 2009Q3

REPORT INFORMATION
  Report Type: 
  Country: None (occurrence: None)
  Receive Date: 20090803
  Receipt Date: 20090730
  Transmission Date: 20100115
  Serious: Yes (Hospitalization)
  Sender: FDA-Public Use
  Company Number: IT-CELGENEUS-083-21880-09061770

PATIENT
  Sex: Male
  Weight: 80 kg

DRUGS (7)
  1. REVLIMID [Suspect]
     Indication: MANTLE CELL LYMPHOMA
     Route: 048
     Dates: start: 20090505, end: 20090528
  2. REVLIMID [Suspect]
     Route: 048
     Dates: start: 20090613
  3. DEXAMETHASONE [Suspect]
     Indication: MANTLE CELL LYMPHOMA
     Route: 048
     Dates: start: 20090505, end: 20090525
  4. DEXAMETHASONE [Suspect]
     Route: 065
     Dates: start: 20090613
  5. ENOXAPARIN SODIUM [Concomitant]
     Indication: DRUG USE FOR UNKNOWN INDICATION
     Route: 058
     Dates: start: 20090505
  6. BACTRIM DS [Concomitant]
     Indication: DRUG USE FOR UNKNOWN INDICATION
     Dosage: 160/800MG
     Route: 048
     Dates: start: 20090505, end: 20090529
  7. PANTOPRAZOLE SODIUM [Concomitant]
     Indication: DRUG USE FOR UNKNOWN INDICATION
     Route: 048
     Dates: start: 20090505

REACTIONS (1)
  - FEBRILE NEUTROPENIA [None]
